FAERS Safety Report 7628585-2 (Version None)
Quarter: 2011Q3

REPORT INFORMATION
  Report Type: 
  Country: None (occurrence: None)
  Receive Date: 20110722
  Receipt Date: 20110713
  Transmission Date: 20111222
  Serious: Yes (Other)
  Sender: FDA-Public Use
  Company Number: AU-JNJFOC-20110705741

PATIENT
  Sex: Male

DRUGS (3)
  1. STELARA [Suspect]
     Route: 058
     Dates: start: 20110504
  2. STELARA [Suspect]
     Route: 058
     Dates: start: 20110112
  3. STELARA [Suspect]
     Indication: PSORIASIS
     Route: 058
     Dates: start: 20110209

REACTIONS (2)
  - STAPHYLOCOCCAL INFECTION [None]
  - DRUG INEFFECTIVE [None]
